FAERS Safety Report 14832517 (Version 1)
Quarter: 2018Q2

REPORT INFORMATION
  Report Type: Not Available
  Country: FR (occurrence: FR)
  Receive Date: 20180501
  Receipt Date: 20180501
  Transmission Date: 20180711
  Serious: Yes (Life-Threatening, Hospitalization)
  Sender: FDA-Public Use
  Company Number: FR-ANIPHARMA-2018-FR-000038

PATIENT
  Age: 72 Year
  Sex: Female

DRUGS (5)
  1. DAFALGAN CODEINE [Suspect]
     Active Substance: ACETAMINOPHEN\CODEINE PHOSPHATE
     Dosage: 23 DF AT ONE TIME
     Route: 048
     Dates: start: 20180207, end: 20180207
  2. VALSARTAN. [Concomitant]
     Active Substance: VALSARTAN
     Dosage: 16MG DAILY
     Route: 048
  3. KARDEGIC [Concomitant]
     Active Substance: ASPIRIN DL-LYSINE
     Route: 048
  4. CANDESARTAN HCT [Suspect]
     Active Substance: CANDESARTAN CILEXETIL\HYDROCHLOROTHIAZIDE
     Indication: SUICIDE ATTEMPT
     Dosage: 8MG/12.MG/20DF AT ONE TIME
     Route: 048
     Dates: start: 20180207, end: 20180207
  5. ZOLPIDEM [Suspect]
     Active Substance: ZOLPIDEM\ZOLPIDEM TARTRATE
     Dosage: 140MG AT ONE TIME
     Route: 048
     Dates: start: 20180207, end: 20180207

REACTIONS (4)
  - Coma [Recovered/Resolved]
  - Miosis [Recovered/Resolved]
  - Hypovolaemic shock [Recovered/Resolved]
  - Respiratory depression [Recovered/Resolved]

NARRATIVE: CASE EVENT DATE: 20180207
